FAERS Safety Report 25144729 (Version 1)
Quarter: 2025Q2

REPORT INFORMATION
  Report Type: Spontaneous
  Country: FR (occurrence: FR)
  Receive Date: 20250401
  Receipt Date: 20250401
  Transmission Date: 20250717
  Serious: Yes (Other)
  Sender: MYLAN
  Company Number: FR-MYLANLABS-2025M1027314

PATIENT
  Age: 39 Year
  Sex: Male

DRUGS (9)
  1. VERAPAMIL [Suspect]
     Active Substance: VERAPAMIL HYDROCHLORIDE
     Indication: Scleroderma
     Dosage: 240 MILLIGRAM, QD
     Dates: start: 2006
  2. VERAPAMIL [Suspect]
     Active Substance: VERAPAMIL HYDROCHLORIDE
     Indication: Calcinosis
  3. OMEPRAZOLE [Suspect]
     Active Substance: OMEPRAZOLE
     Indication: Scleroderma
     Dosage: 20 MILLIGRAM, QD
     Dates: start: 2006
  4. OMEPRAZOLE [Suspect]
     Active Substance: OMEPRAZOLE
     Indication: Calcinosis
  5. MINOCYCLINE [Suspect]
     Active Substance: MINOCYCLINE HYDROCHLORIDE
     Indication: Scleroderma
  6. MINOCYCLINE [Suspect]
     Active Substance: MINOCYCLINE HYDROCHLORIDE
     Indication: Calcinosis
  7. SILDENAFIL [Suspect]
     Active Substance: SILDENAFIL
     Indication: Erectile dysfunction
  8. LOSARTAN [Suspect]
     Active Substance: LOSARTAN
     Indication: Scleroderma
     Dosage: 50 MILLIGRAM, QD
     Dates: start: 2006
  9. LOSARTAN [Suspect]
     Active Substance: LOSARTAN
     Indication: Calcinosis

REACTIONS (2)
  - Drug ineffective [Unknown]
  - Off label use [Unknown]
